FAERS Safety Report 12192025 (Version 1)
Quarter: 2016Q1

REPORT INFORMATION
  Report Type: Spontaneous
  Country: US (occurrence: US)
  Receive Date: 20160318
  Receipt Date: 20160318
  Transmission Date: 20160526
  Serious: Yes (Hospitalization, Other)
  Sender: FDA-Public Use
  Company Number: US-TEVA-642913USA

PATIENT
  Age: 53 Year
  Sex: Female

DRUGS (10)
  1. METOPROLOL TARTRATE. [Concomitant]
     Active Substance: METOPROLOL TARTRATE
     Dates: start: 20140905
  2. ENDOCET [Concomitant]
     Active Substance: ACETAMINOPHEN\OXYCODONE HYDROCHLORIDE
     Dosage: 10 + 325 MILLIGRAM
     Dates: start: 20140905
  3. WARFARIN [Concomitant]
     Active Substance: WARFARIN
     Dates: start: 20150601
  4. BUDESONIDE. [Concomitant]
     Active Substance: BUDESONIDE
     Dosage: 3 MILLIGRAM DAILY;
     Dates: start: 20140905
  5. BACLOFEN. [Concomitant]
     Active Substance: BACLOFEN
     Dates: start: 20140905
  6. IRON [Concomitant]
     Active Substance: IRON
     Dates: start: 20140905
  7. COPAXONE [Suspect]
     Active Substance: GLATIRAMER ACETATE
     Indication: MULTIPLE SCLEROSIS
     Route: 058
     Dates: start: 20140916
  8. LISINOPRIL. [Concomitant]
     Active Substance: LISINOPRIL
     Dates: start: 20140905
  9. VITAMIN D [Concomitant]
     Active Substance: CHOLECALCIFEROL
     Dates: start: 20140905
  10. MAGNESIUM [Concomitant]
     Active Substance: MAGNESIUM
     Dates: start: 20140905

REACTIONS (5)
  - Psychotic disorder [Not Recovered/Not Resolved]
  - Pain in extremity [Not Recovered/Not Resolved]
  - Pollakiuria [Not Recovered/Not Resolved]
  - Gait disturbance [Not Recovered/Not Resolved]
  - Hallucination [Not Recovered/Not Resolved]

NARRATIVE: CASE EVENT DATE: 20160223
